FAERS Safety Report 24132458 (Version 1)
Quarter: 2024Q3

REPORT INFORMATION
  Report Type: Spontaneous
  Country: US (occurrence: US)
  Receive Date: 20240724
  Receipt Date: 20240724
  Transmission Date: 20241016
  Serious: Yes (Life-Threatening, Hospitalization, Other)
  Sender: GLAND PHARMA
  Company Number: US-GLANDPHARMA-US-2024GLNLIT00474

PATIENT
  Age: 44 Year
  Sex: Male

DRUGS (3)
  1. TRANEXAMIC ACID [Suspect]
     Active Substance: TRANEXAMIC ACID
     Indication: Procedural haemorrhage
     Route: 065
  2. FENTANYL [Concomitant]
     Active Substance: FENTANYL\FENTANYL CITRATE
     Route: 065
  3. PROPOFOL [Concomitant]
     Active Substance: PROPOFOL
     Route: 065

REACTIONS (10)
  - Pyrexia [Recovered/Resolved]
  - Clonus [Recovered/Resolved]
  - Hyperreflexia [Recovered/Resolved]
  - Neurotoxicity [Unknown]
  - Tachycardia [Recovering/Resolving]
  - Hypertension [Recovering/Resolving]
  - Agitation [Recovering/Resolving]
  - Disorientation [Recovering/Resolving]
  - Tremor [Recovering/Resolving]
  - Muscle rigidity [Recovering/Resolving]
